FAERS Safety Report 20579671 (Version 2)
Quarter: 2022Q1

REPORT INFORMATION
  Report Type: Report from Study
  Country: CA (occurrence: CA)
  Receive Date: 20220310
  Receipt Date: 20220314
  Transmission Date: 20220423
  Serious: Yes (Other)
  Sender: FDA-Public Use
  Company Number: CA-NOVARTISPH-PHHY2018CA039407

PATIENT
  Age: 60 Year
  Sex: Female

DRUGS (5)
  1. ILARIS [Suspect]
     Active Substance: CANAKINUMAB
     Indication: Muckle-Wells syndrome
     Dosage: 150 MG, EVERY 7 WEEKS
     Route: 058
     Dates: start: 20170605
  2. BETADERM [Concomitant]
     Active Substance: BETAMETHASONE VALERATE
     Indication: Product used for unknown indication
     Dosage: UNK
     Route: 065
  3. REACTIN [Concomitant]
     Indication: Product used for unknown indication
     Dosage: 1 DOSAGE FORM
     Route: 065
     Dates: start: 2014
  4. TYLENOL [Concomitant]
     Active Substance: ACETAMINOPHEN
     Indication: Product used for unknown indication
     Dosage: 1 DOSAGE FORM
     Route: 065
     Dates: start: 2000
  5. NAPROXEN [Concomitant]
     Active Substance: NAPROXEN
     Indication: Product used for unknown indication
     Dosage: 1 DOSAGE FORM
     Route: 061
     Dates: start: 2016

REACTIONS (15)
  - Cryopyrin associated periodic syndrome [Unknown]
  - Pyrexia [Unknown]
  - Chills [Unknown]
  - Conjunctivitis [Unknown]
  - Arthralgia [Unknown]
  - Rash [Unknown]
  - Serum amyloid A protein increased [Unknown]
  - Malaise [Unknown]
  - Myalgia [Unknown]
  - Presyncope [Unknown]
  - Skin disorder [Unknown]
  - Fatigue [Unknown]
  - Condition aggravated [Unknown]
  - Burning sensation [Unknown]
  - Urticaria [Unknown]

NARRATIVE: CASE EVENT DATE: 20180220
